FAERS Safety Report 7678848-X (Version None)
Quarter: 2011Q3

REPORT INFORMATION
  Report Type: 
  Country: None (occurrence: None)
  Receive Date: 20110812
  Receipt Date: 20110805
  Transmission Date: 20111222
  Serious: Yes (Hospitalization)
  Sender: FDA-Public Use
  Company Number: PHHY2011FR71505

PATIENT
  Sex: Male
  Weight: 104 kg

DRUGS (8)
  1. METOPIRONE [Suspect]
     Indication: PITUITARY-DEPENDENT CUSHING'S SYNDROME
     Dosage: 6 DF, DAILY
     Route: 048
     Dates: start: 20101116, end: 20101117
  2. ALDACTONE [Suspect]
     Indication: HYPERTENSION
     Dosage: 75 MG, UNK
     Route: 048
     Dates: start: 20101118
  3. HYDROCORTISONE [Concomitant]
     Indication: ADRENOCORTICAL INSUFFICIENCY ACUTE
     Dosage: 20 MG, UNK
     Dates: start: 20101118
  4. LYSODREN [Suspect]
     Dosage: 2 DF, BID
     Route: 048
     Dates: start: 20101006
  5. LERCANIDIPINE [Suspect]
     Dosage: UNK UKN, UNK
  6. METOPIRONE [Suspect]
     Dosage: 3 DF, PER DAY
     Route: 048
     Dates: start: 20110513
  7. METOPIRONE [Suspect]
     Dosage: 9 DF, DAILY
     Route: 048
     Dates: start: 20101118, end: 20101213
  8. LEVOTHYROXINE SODIUM [Suspect]
     Dosage: 150 UG, DAILY
     Route: 048

REACTIONS (4)
  - ASPARTATE AMINOTRANSFERASE INCREASED [None]
  - GAMMA-GLUTAMYLTRANSFERASE INCREASED [None]
  - ALANINE AMINOTRANSFERASE INCREASED [None]
  - HEPATITIS [None]
